FAERS Safety Report 4490792-8 (Version None)
Quarter: 2004Q4

REPORT INFORMATION
  Report Type: 
  Country: None (occurrence: None)
  Receive Date: 20041027
  Receipt Date: 20041014
  Transmission Date: 20050328
  Serious: Yes (Hospitalization)
  Sender: FDA-Public Use
  Company Number: STA-AE-04--MTX-491

PATIENT
  Age: 36 Year
  Sex: Female

DRUGS (2)
  1. METHOTREXATE [Suspect]
     Indication: RHEUMATOID ARTHRITIS
  2. ETANERCEPT (ETANERCEPT, INJECTION) [Suspect]
     Dosage: 25 MG 2X PER 1 WK, SC
     Route: 058
     Dates: start: 19971204, end: 20040923

REACTIONS (1)
  - CELLULITIS [None]
